FAERS Safety Report 4458176-6 (Version None)
Quarter: 2004Q3

REPORT INFORMATION
  Report Type: 
  Country: None (occurrence: None)
  Receive Date: 20040922
  Receipt Date: 20040914
  Transmission Date: 20050211
  Serious: Yes (Hospitalization)
  Sender: FDA-Public Use
  Company Number: ZONI002021

PATIENT
  Age: 14 Year
  Sex: Male

DRUGS (3)
  1. EXCEGRAN (ZONISAMIDE) [Suspect]
     Indication: ELECTROENCEPHALOGRAM ABNORMAL
     Dosage: 200 MG, 1 IN 1 D, ORAL
     Route: 048
     Dates: start: 20010516, end: 20010520
  2. TEGRETOL [Suspect]
     Indication: ELECTROENCEPHALOGRAM ABNORMAL
     Dosage: SEE IMAGE
     Route: 048
     Dates: start: 20010423, end: 20010516
  3. TEGRETOL [Suspect]
     Indication: ELECTROENCEPHALOGRAM ABNORMAL
     Dosage: SEE IMAGE
     Route: 048
     Dates: start: 20010409, end: 20030422

REACTIONS (8)
  - DERMATITIS ACNEIFORM [None]
  - ERYTHEMA [None]
  - FACE OEDEMA [None]
  - HEPATOMEGALY [None]
  - LYMPHADENOPATHY [None]
  - PRURITUS [None]
  - PYREXIA [None]
  - SKIN DESQUAMATION [None]
